FAERS Safety Report 6315938-8 (Version None)
Quarter: 2009Q3

REPORT INFORMATION
  Report Type: 
  Country: None (occurrence: None)
  Receive Date: 20090820
  Receipt Date: 20080821
  Transmission Date: 20100115
  Serious: No
  Sender: FDA-Public Use
  Company Number: US-KINGPHARMUSA00001-K200800998

PATIENT
  Sex: Female

DRUGS (2)
  1. CYTOMEL [Suspect]
  2. LEVOXYL [Suspect]

REACTIONS (5)
  - ASTHENIA [None]
  - BALANCE DISORDER [None]
  - INSOMNIA [None]
  - SKIN DISORDER [None]
  - SKIN WRINKLING [None]
